FAERS Safety Report 19726113 (Version 1)
Quarter: 2021Q3

REPORT INFORMATION
  Report Type: Spontaneous
  Country: US (occurrence: US)
  Receive Date: 20210819
  Receipt Date: 20210819
  Transmission Date: 20211014
  Serious: No
  Sender: FDA-Public Use
  Company Number: US-SA-2021SA272913

PATIENT
  Age: 64 Year
  Sex: Male

DRUGS (1)
  1. LOVENOX [Suspect]
     Active Substance: ENOXAPARIN SODIUM
     Indication: DEEP VEIN THROMBOSIS
     Dosage: DRUG STRUCTURE DOSAGE : 1ML DRUG INTERVAL DOSAGE : TWICE DAILY
     Route: 065

REACTIONS (2)
  - Dyspnoea [Unknown]
  - Pain [Unknown]
